FAERS Safety Report 11044583 (Version 1)
Quarter: 2015Q2

REPORT INFORMATION
  Report Type: Spontaneous
  Country: CH (occurrence: None)
  Receive Date: 20150415
  Receipt Date: 20150415
  Transmission Date: 20150821
  Serious: Yes (Other)
  Sender: FDA-Public Use
  Company Number: 20150202

PATIENT
  Age: 16 Year
  Sex: Female

DRUGS (2)
  1. PACKED RED BLOOD CELLS, ONE UNIT [Concomitant]
  2. VENOFER [Suspect]
     Active Substance: IRON SUCROSE
     Indication: MICROCYTIC ANAEMIA
     Dosage: 100 MG, ON DAY 1
     Route: 042

REACTIONS (4)
  - Neutrophil morphology abnormal [None]
  - Anisocytosis [None]
  - Thrombocytopenia [None]
  - Microcytosis [None]
